FAERS Safety Report 19177976 (Version 8)
Quarter: 2021Q2

REPORT INFORMATION
  Report Type: Report from Study
  Country: None (occurrence: AU)
  Receive Date: 20210426
  Receipt Date: 20210604
  Transmission Date: 20210717
  Serious: Yes (Hospitalization)
  Sender: FDA-Public Use
  Company Number: AU-ABBVIE-21K-008-3872350-00

PATIENT
  Age: 80 Year
  Sex: Male

DRUGS (2)
  1. DUODOPA [Suspect]
     Active Substance: CARBIDOPA\LEVODOPA
     Route: 050
     Dates: start: 2021
  2. DUODOPA [Suspect]
     Active Substance: CARBIDOPA\LEVODOPA
     Indication: PARKINSON^S DISEASE
     Dosage: DUODOPA 100ML GEL CASSETTE
     Route: 050
     Dates: start: 20210413, end: 202104

REACTIONS (16)
  - Ascites [Recovering/Resolving]
  - Hypokalaemia [Recovered/Resolved]
  - Bradykinesia [Recovering/Resolving]
  - Delirium [Recovering/Resolving]
  - Pyrexia [Recovered/Resolved]
  - Therapeutic product effect variable [Unknown]
  - Pyrexia [Recovered/Resolved]
  - Abdominal distension [Recovering/Resolving]
  - Fungal infection [Recovered/Resolved]
  - Tremor [Unknown]
  - Inappropriate schedule of product administration [Unknown]
  - Stoma site erythema [Recovered/Resolved]
  - Oromandibular dystonia [Recovering/Resolving]
  - Stoma site pain [Recovered/Resolved]
  - Stoma site oedema [Recovered/Resolved]
  - Electrolyte imbalance [Recovering/Resolving]

NARRATIVE: CASE EVENT DATE: 2021
